FAERS Safety Report 21061247 (Version 2)
Quarter: 2022Q4

REPORT INFORMATION
  Report Type: Spontaneous
  Country: US (occurrence: US)
  Receive Date: 20220709
  Receipt Date: 20221110
  Transmission Date: 20230113
  Serious: No
  Sender: FDA-Public Use
  Company Number: US-SA-SAC20220706001755

PATIENT
  Age: 29 Year
  Sex: Female

DRUGS (1)
  1. DUPIXENT [Suspect]
     Active Substance: DUPILUMAB
     Indication: Dermatitis atopic
     Dosage: 300 MG FREQUENCY: OTHER
     Route: 058
     Dates: start: 202106

REACTIONS (3)
  - Dry skin [Unknown]
  - Product dose omission issue [Unknown]
  - Exposure during pregnancy [Unknown]
